FAERS Safety Report 14294175 (Version 1)
Quarter: 2017Q4

REPORT INFORMATION
  Report Type: Other
  Country: NL (occurrence: NL)
  Receive Date: 20171217
  Receipt Date: 20171217
  Transmission Date: 20180321
  Serious: Yes (Other)
  Sender: FDA-Public Use
  Company Number: NL-ALSI-201700449

PATIENT
  Age: 17 Year
  Sex: Female

DRUGS (1)
  1. NITROUS OXIDE. [Suspect]
     Active Substance: NITROUS OXIDE
     Indication: SUBSTANCE USE
     Route: 055

REACTIONS (3)
  - Vitamin B12 deficiency [Recovered/Resolved]
  - Substance use [Recovered/Resolved]
  - Polyneuropathy [Recovered/Resolved]
